FAERS Safety Report 7440184-4 (Version None)
Quarter: 2011Q2

REPORT INFORMATION
  Report Type: 
  Country: None (occurrence: None)
  Receive Date: 20110427
  Receipt Date: 20110425
  Transmission Date: 20111010
  Serious: No
  Sender: FDA-Public Use
  Company Number: BR-ROCHE-773181

PATIENT
  Sex: Female
  Weight: 48 kg

DRUGS (2)
  1. YAZ [Concomitant]
     Indication: CONTRACEPTION
     Dosage: DAILY
     Dates: end: 20110421
  2. ROACUTAN [Suspect]
     Route: 048
     Dates: start: 20101201, end: 20110310

REACTIONS (2)
  - NO ADVERSE EVENT [None]
  - PREGNANCY [None]
